FAERS Safety Report 18688456 (Version 1)
Quarter: 2020Q4

REPORT INFORMATION
  Report Type: Spontaneous
  Country: US (occurrence: US)
  Receive Date: 20201231
  Receipt Date: 20201231
  Transmission Date: 20210114
  Serious: Yes (Hospitalization)
  Sender: FDA-Public Use
  Company Number: US-ENDO PHARMACEUTICALS INC-2020-008079

PATIENT
  Age: 17 Year
  Sex: Female

DRUGS (1)
  1. DOXYCYCLINE HYCLATE. [Suspect]
     Active Substance: DOXYCYCLINE HYCLATE
     Indication: ACNE
     Dosage: 100 MG, BID, TAKING FOR FIVE DAYS BEFORE PRESENTATION
     Route: 065

REACTIONS (3)
  - Acute kidney injury [Recovering/Resolving]
  - Acute hepatic failure [Recovered/Resolved]
  - Haemolytic anaemia [Unknown]
